FAERS Safety Report 7982137-3 (Version None)
Quarter: 2011Q4

REPORT INFORMATION
  Report Type: 
  Country: None (occurrence: None)
  Receive Date: 20111212
  Receipt Date: 20111201
  Transmission Date: 20120403
  Serious: Yes (Other)
  Sender: FDA-Public Use
  Company Number: 2011SP056287

PATIENT
  Sex: Male

DRUGS (5)
  1. OXYCODONE HCL [Concomitant]
  2. RIBAVIRIN [Suspect]
     Indication: HEPATITIS C
     Dates: start: 20111202
  3. RIBAVIRIN [Suspect]
     Indication: HEPATITIS C
     Dates: start: 20100401, end: 20100614
  4. PEGASYS [Suspect]
     Indication: HEPATITIS C
     Dates: start: 20100401, end: 20100614
  5. PEGASYS [Suspect]
     Indication: HEPATITIS C
     Dates: start: 20111202

REACTIONS (3)
  - WHITE BLOOD CELL COUNT DECREASED [None]
  - LOSS OF CONSCIOUSNESS [None]
  - RED BLOOD CELL COUNT DECREASED [None]
